APPROVED DRUG PRODUCT: IBUPROFEN
Active Ingredient: IBUPROFEN
Strength: 200MG
Dosage Form/Route: TABLET;ORAL
Application: A077349 | Product #001
Applicant: PERRIGO R AND D CO
Approved: Jun 21, 2005 | RLD: No | RS: Yes | Type: OTC